FAERS Safety Report 6591523-8 (Version None)
Quarter: 2010Q1

REPORT INFORMATION
  Report Type: 
  Country: None (occurrence: None)
  Receive Date: 20100220
  Receipt Date: 20100208
  Transmission Date: 20100710
  Serious: Yes (Other)
  Sender: FDA-Public Use
  Company Number: US-ELI_LILLY_AND_COMPANY-US201002002344

PATIENT
  Sex: Male

DRUGS (8)
  1. BYETTA [Suspect]
     Dates: start: 20070101, end: 20090101
  2. COREG [Concomitant]
  3. ALLOPURINOL [Concomitant]
  4. LOTREL [Concomitant]
  5. PLAVIX [Concomitant]
  6. JANUVIA [Concomitant]
  7. DIGOXIN [Concomitant]
  8. LANTUS [Concomitant]
     Dosage: 18 U, UNK
     Dates: start: 20040101

REACTIONS (9)
  - ABDOMINAL PAIN UPPER [None]
  - CARDIAC PACEMAKER INSERTION [None]
  - CAROTID ARTERY OCCLUSION [None]
  - DIPLOPIA [None]
  - DISORIENTATION [None]
  - NAUSEA [None]
  - PHOTOPHOBIA [None]
  - PROCEDURAL COMPLICATION [None]
  - VISION BLURRED [None]
